FAERS Safety Report 18528787 (Version 2)
Quarter: 2020Q4

REPORT INFORMATION
  Report Type: Spontaneous
  Country: US (occurrence: US)
  Receive Date: 20201120
  Receipt Date: 20201215
  Transmission Date: 20210114
  Serious: Yes (Other)
  Sender: FDA-Public Use
  Company Number: US-STRIDES ARCOLAB LIMITED-2020SP014174

PATIENT
  Age: 74 Year
  Sex: Female

DRUGS (8)
  1. AZATHIOPRINE. [Suspect]
     Active Substance: AZATHIOPRINE
     Indication: DERMATOMYOSITIS
     Dosage: UNK
     Route: 065
  2. GANCICLOVIR. [Concomitant]
     Active Substance: GANCICLOVIR
     Indication: RETINITIS VIRAL
     Dosage: UNK
     Route: 040
  3. VALACYCLOVIR [Concomitant]
     Active Substance: VALACYCLOVIR HYDROCHLORIDE
     Indication: RETINITIS VIRAL
     Dosage: 1 GRAM, TID
     Route: 065
  4. PREDNISOLONE. [Suspect]
     Active Substance: PREDNISOLONE
     Indication: IRITIS
     Dosage: UNK, PREDNISOLONE ACETATE FOR IRITIS OF THE RIGHT EYE
     Route: 061
  5. TRIAMCINOLONE ACETONIDE. [Suspect]
     Active Substance: TRIAMCINOLONE ACETONIDE
     Indication: PRODUCT USED FOR UNKNOWN INDICATION
     Dosage: 1 MILLILITER, 1 TOTAL, INJECTION
     Route: 065
  6. PREDNISOLONE. [Suspect]
     Active Substance: PREDNISOLONE
     Dosage: 10 MILLIGRAM, PER DAY, TAPERED OVER TO 10 MG/DAY OVER A 1 WEEK PERIOD
     Route: 048
  7. PREDNISOLONE. [Suspect]
     Active Substance: PREDNISOLONE
     Indication: RETINITIS VIRAL
     Dosage: 60 MILLIGRAM, PREDNISONE FOR VIRAL RETINITIS
     Route: 048
  8. FOSCARNET [Concomitant]
     Active Substance: FOSCARNET
     Indication: RETINITIS VIRAL
     Dosage: UNK

REACTIONS (6)
  - Blindness [Not Recovered/Not Resolved]
  - Pupillary reflex impaired [Unknown]
  - Uveitis [Recovered/Resolved]
  - Tractional retinal detachment [Recovered/Resolved]
  - Eye infection toxoplasmal [Recovered/Resolved]
  - Rhegmatogenous retinal detachment [Recovered/Resolved]
